FAERS Safety Report 10067552 (Version 2)
Quarter: 2014Q2

REPORT INFORMATION
  Report Type: Spontaneous
  Country: JP (occurrence: JP)
  Receive Date: 20140409
  Receipt Date: 20140409
  Transmission Date: 20141212
  Serious: Yes (Life-Threatening, Other)
  Sender: FDA-Public Use
  Company Number: JP-ROCHE-1358542

PATIENT
  Age: 67 Year
  Sex: Male

DRUGS (14)
  1. RITUXIMAB [Suspect]
     Indication: CASTLEMAN^S DISEASE
     Dosage: 580 MG/BODY
     Route: 042
     Dates: end: 20130627
  2. RITUXIMAB [Suspect]
     Indication: HIV TEST POSITIVE
     Route: 042
     Dates: end: 20130704
  3. RITUXIMAB [Suspect]
     Indication: HERPES VIRUS INFECTION
     Route: 042
     Dates: end: 20130711
  4. RESTAMIN KOWA [Concomitant]
     Indication: PREMEDICATION
     Route: 048
     Dates: start: 20130627
  5. RESTAMIN KOWA [Concomitant]
     Route: 048
     Dates: end: 20130704
  6. RESTAMIN KOWA [Concomitant]
     Route: 048
     Dates: end: 20130711
  7. EPZICOM [Concomitant]
     Indication: HIV INFECTION
     Route: 048
     Dates: start: 20110517
  8. ISENTRESS [Concomitant]
     Indication: HIV INFECTION
     Route: 048
     Dates: start: 20110517
  9. SAMTIREL [Concomitant]
     Indication: HIV INFECTION
     Route: 065
     Dates: start: 20110419
  10. SAMTIREL [Concomitant]
     Route: 048
     Dates: start: 20130905
  11. RISPERDAL [Concomitant]
     Indication: DEPRESSION
     Route: 048
     Dates: start: 20130502
  12. WYPAX [Concomitant]
     Indication: DEPRESSION
     Route: 048
     Dates: start: 20130502
  13. PARIET [Concomitant]
     Indication: PROPHYLAXIS AGAINST GASTROINTESTINAL ULCER
     Route: 048
     Dates: start: 20120814
  14. HARNAL D [Concomitant]
     Indication: URINARY RETENTION
     Route: 048
     Dates: start: 20130520

REACTIONS (3)
  - Kaposi^s sarcoma [Not Recovered/Not Resolved]
  - Off label use [Unknown]
  - Sepsis [Recovered/Resolved]
